FAERS Safety Report 5412233-6 (Version None)
Quarter: 2007Q3

REPORT INFORMATION
  Report Type: 
  Country: None (occurrence: None)
  Receive Date: 20070713
  Receipt Date: 20070521
  Transmission Date: 20080115
  Serious: No
  Sender: FDA-Public Use
  Company Number: 2007SP001880

PATIENT
  Age: 82 Year
  Sex: Male
  Weight: 67.1324 kg

DRUGS (5)
  1. LUNESTA [Suspect]
     Indication: INSOMNIA
     Dosage: 2 MG HS ORAL
     Route: 048
     Dates: start: 20070516
  2. LOPRESSOR [Concomitant]
  3. CILOSTAZOL [Concomitant]
  4. VYTORIN [Concomitant]
  5. IMDUR [Concomitant]

REACTIONS (2)
  - DRUG INEFFECTIVE [None]
  - INITIAL INSOMNIA [None]
